FAERS Safety Report 14166099 (Version 2)
Quarter: 2017Q4

REPORT INFORMATION
  Report Type: Other
  Country: DK (occurrence: DK)
  Receive Date: 20171107
  Receipt Date: 20171108
  Transmission Date: 20180321
  Serious: Yes (Hospitalization)
  Sender: FDA-Public Use
  Company Number: DK-CELLTRION HEALTHCARE JAPAN K.K.-2017DK015131

PATIENT

DRUGS (1)
  1. INFLECTRA [Suspect]
     Active Substance: INFLIXIMAB-DYYB
     Indication: ANKYLOSING SPONDYLITIS
     Dosage: 400 MG,  WEEK 0, 2, 6, +6
     Route: 042
     Dates: start: 20171023, end: 20171023

REACTIONS (3)
  - Oral pruritus [Not Recovered/Not Resolved]
  - Chest discomfort [Not Recovered/Not Resolved]
  - Product substitution [Unknown]

NARRATIVE: CASE EVENT DATE: 20171023
